FAERS Safety Report 17528917 (Version 1)
Quarter: 2020Q1

REPORT INFORMATION
  Report Type: Spontaneous
  Country: GB (occurrence: GB)
  Receive Date: 20200312
  Receipt Date: 20200312
  Transmission Date: 20200409
  Serious: Yes (Disabling)
  Sender: FDA-Public Use
  Company Number: GB-TEVA-2020-GB-1197171

PATIENT
  Age: 17 Year
  Sex: Female
  Weight: 77 kg

DRUGS (5)
  1. NAPROXEN. [Suspect]
     Active Substance: NAPROXEN
     Dosage: 750 MG
     Route: 065
     Dates: start: 20200212
  2. AMOXICILLIN. [Concomitant]
     Active Substance: AMOXICILLIN
     Indication: COUGH
     Dosage: ACUTE COUGH/BRONCHITIS - CONSIDER DELAYED SCRIP...
     Dates: start: 20191220, end: 20191225
  3. COCODAMOL [Concomitant]
     Active Substance: ACETAMINOPHEN\CODEINE PHOSPHATE
     Dosage: TAKE 1 OR 2 UP TO 4 TIMES/DAY
     Dates: start: 20200213, end: 20200220
  4. SUMATRIPTAN. [Concomitant]
     Active Substance: SUMATRIPTAN
     Indication: MIGRAINE
     Dosage: TAKE ONE AS REQUIRED AT START OF MIRGAINE AND A...
     Dates: start: 20191202, end: 20191209
  5. LANSOPRAZOLE. [Concomitant]
     Active Substance: LANSOPRAZOLE
     Dosage: ON DAYS TAKING NAPROXEN, 1 DF
     Dates: start: 20191202, end: 20191230

REACTIONS (1)
  - Suicidal ideation [Recovered/Resolved]

NARRATIVE: CASE EVENT DATE: 20200220
